FAERS Safety Report 7741581-X (Version None)
Quarter: 2011Q3

REPORT INFORMATION
  Report Type: 
  Country: None (occurrence: None)
  Receive Date: 20110909
  Receipt Date: 20110831
  Transmission Date: 20111222
  Serious: Yes (Disabling)
  Sender: FDA-Public Use
  Company Number: JP-ASTRAZENECA-2011SE48024

PATIENT
  Age: 72 Year
  Sex: Female
  Weight: 44 kg

DRUGS (3)
  1. DIPRIVAN [Suspect]
     Indication: SEDATION
     Dosage: TOTAL DOSAGE: 5050 MG (0.2MG/KG/HR - 1.8MG/KG/HR)
     Route: 041
     Dates: start: 20110804, end: 20110808
  2. HALOPERIDOL [Concomitant]
     Indication: SEDATION
     Route: 040
     Dates: start: 20110807, end: 20110807
  3. PRECEDEX [Concomitant]
     Indication: SEDATION
     Dosage: TOTAL 1360 MCG
     Route: 041
     Dates: start: 20110804, end: 20110809

REACTIONS (2)
  - SEDATION [None]
  - OVERDOSE [None]
